FAERS Safety Report 10638558 (Version 1)
Quarter: 2014Q4

REPORT INFORMATION
  Report Type: Spontaneous
  Country: FR (occurrence: None)
  Receive Date: 20141204
  Receipt Date: 20141204
  Transmission Date: 20150529
  Serious: Yes (Other)
  Sender: FDA-Public Use
  Company Number: 2014SA151740

PATIENT
  Age: 77 Year
  Sex: Male

DRUGS (1)
  1. DOCETAXEL (DOCETAXEL) /UNKNOWN/ UNKNOWN [Suspect]
     Active Substance: DOCETAXEL
     Indication: PRODUCT USED FOR UNKNOWN INDICATION

REACTIONS (17)
  - Paraesthesia [None]
  - Asthenia [None]
  - Back pain [None]
  - Areflexia [None]
  - Pain [None]
  - Oedema peripheral [None]
  - Vomiting [None]
  - Anuria [None]
  - Fatigue [None]
  - Dyspnoea [None]
  - Alopecia [None]
  - Lacrimation increased [None]
  - Pollakiuria [None]
  - Haematuria [None]
  - Nausea [None]
  - Peripheral sensory neuropathy [None]
  - Diarrhoea [None]

NARRATIVE: CASE EVENT DATE: 20141119
